FAERS Safety Report 24032282 (Version 4)
Quarter: 2024Q3

REPORT INFORMATION
  Report Type: Report from Study
  Country: US (occurrence: US)
  Receive Date: 20240630
  Receipt Date: 20240715
  Transmission Date: 20241016
  Serious: Yes (Other)
  Sender: ABBVIE
  Company Number: US-ABBVIE-5820741

PATIENT
  Age: 85 Year
  Sex: Female

DRUGS (2)
  1. RINVOQ [Suspect]
     Active Substance: UPADACITINIB
     Indication: Colitis ulcerative
     Dosage: LAST ADMIN DATE: JUN 2024
     Route: 048
     Dates: start: 20240610
  2. RINVOQ [Suspect]
     Active Substance: UPADACITINIB
     Indication: Colitis ulcerative
     Dosage: THERAPY START DATE 2024
     Route: 048

REACTIONS (9)
  - Complication associated with device [Not Recovered/Not Resolved]
  - Leukaemia recurrent [Not Recovered/Not Resolved]
  - White blood cell count abnormal [Unknown]
  - Diarrhoea [Unknown]
  - Red blood cell count abnormal [Unknown]
  - Full blood count increased [Unknown]
  - Lymphocyte count abnormal [Unknown]
  - Haematocrit abnormal [Unknown]
  - Lipids increased [Unknown]

NARRATIVE: CASE EVENT DATE: 20240601
